FAERS Safety Report 18611093 (Version 1)
Quarter: 2020Q4

REPORT INFORMATION
  Report Type: Spontaneous
  Country: US (occurrence: US)
  Receive Date: 20201214
  Receipt Date: 20201214
  Transmission Date: 20210114
  Serious: No
  Sender: FDA-Public Use
  Company Number: US-PFIZER INC-2020488136

PATIENT
  Sex: Female

DRUGS (2)
  1. CELEBREX [Suspect]
     Active Substance: CELECOXIB
     Dosage: UNK, AS NEEDED
  2. CELEBREX [Suspect]
     Active Substance: CELECOXIB
     Dosage: UNK, DAILY

REACTIONS (1)
  - Rash pustular [Unknown]
